FAERS Safety Report 12852777 (Version 1)
Quarter: 2016Q4

REPORT INFORMATION
  Report Type: Spontaneous
  Country: US (occurrence: US)
  Receive Date: 20161016
  Receipt Date: 20161016
  Transmission Date: 20170207
  Serious: No
  Sender: FDA-Public Use
  Company Number: None

PATIENT
  Age: 29 Year
  Sex: Female
  Weight: 58.5 kg

DRUGS (3)
  1. MICONAZOLE 1 [Suspect]
     Active Substance: MICONAZOLE NITRATE
     Indication: FUNGAL INFECTION
     Route: 067
     Dates: start: 20161015
  2. PROBIOTICS [Concomitant]
     Active Substance: PROBIOTICS NOS
  3. MULTIVITAMIN [Concomitant]
     Active Substance: VITAMINS

REACTIONS (4)
  - Burning sensation [None]
  - Erythema [None]
  - Scar [None]
  - Pain [None]

NARRATIVE: CASE EVENT DATE: 20161015
